FAERS Safety Report 9909034 (Version 1)
Quarter: 2014Q1

REPORT INFORMATION
  Report Type: Spontaneous
  Country: US (occurrence: None)
  Receive Date: 20140214
  Receipt Date: 20140214
  Transmission Date: 20141002
  Serious: Yes (Death, Hospitalization)
  Sender: FDA-Public Use
  Company Number: None

PATIENT
  Age: 63 Year
  Sex: Male
  Weight: 101.2 kg

DRUGS (6)
  1. COUMADIN [Suspect]
     Indication: ATRIAL FIBRILLATION
     Dosage: CHRONIC
     Route: 048
  2. ENALAPRIL [Concomitant]
  3. BENTYL [Concomitant]
  4. COREG [Concomitant]
  5. SOMA [Concomitant]
  6. VICODIN [Concomitant]

REACTIONS (2)
  - Cerebral haemorrhage [None]
  - Coma [None]
